FAERS Safety Report 21053597 (Version 4)
Quarter: 2022Q3

REPORT INFORMATION
  Report Type: Spontaneous
  Country: AT (occurrence: AT)
  Receive Date: 20220707
  Receipt Date: 20220810
  Transmission Date: 20221027
  Serious: Yes (Other)
  Sender: FDA-Public Use
  Company Number: AT-BAYER-2022A094453

PATIENT
  Age: 56 Year
  Sex: Female

DRUGS (1)
  1. MIRENA [Suspect]
     Active Substance: LEVONORGESTREL
     Dosage: 20?G/DAY
     Route: 015
     Dates: start: 2012, end: 2022

REACTIONS (3)
  - Device breakage [None]
  - Complication of device removal [None]
  - Device use issue [None]

NARRATIVE: CASE EVENT DATE: 20220101
